FAERS Safety Report 4751392-5 (Version None)
Quarter: 2005Q3

REPORT INFORMATION
  Report Type: 
  Country: None (occurrence: None)
  Receive Date: 20050824
  Receipt Date: 20050815
  Transmission Date: 20060218
  Serious: Yes (Other)
  Sender: FDA-Public Use
  Company Number: US-ROCHE-414470

PATIENT
  Age: 57 Year
  Sex: Male
  Weight: 79.4 kg

DRUGS (6)
  1. KLONOPIN [Suspect]
     Indication: PHOBIA OF FLYING
     Dosage: FORMULATION REPORTED AS WAFER. 1MG TAKEN AT NIGHT
     Route: 048
     Dates: start: 20040928, end: 20041012
  2. KLONOPIN [Suspect]
     Dosage: FORMULATION REPORTED AS WAFER. 1MG TAKEN AT NIGHT
     Route: 048
     Dates: start: 20041120, end: 20041212
  3. AMBIEN [Interacting]
     Route: 065
  4. PROPECIA [Concomitant]
     Route: 048
  5. PROPRANOLOL [Concomitant]
  6. DRAMAMINE [Concomitant]

REACTIONS (8)
  - ABNORMAL DREAMS [None]
  - ALOPECIA [None]
  - CONVULSION [None]
  - DRUG INTERACTION [None]
  - DRUG WITHDRAWAL SYNDROME [None]
  - MUSCLE TWITCHING [None]
  - STOMACH DISCOMFORT [None]
  - SUICIDAL IDEATION [None]
